FAERS Safety Report 10441445 (Version 1)
Quarter: 2014Q3

REPORT INFORMATION
  Report Type: Spontaneous
  Country: US (occurrence: None)
  Receive Date: 20140908
  Receipt Date: 20140908
  Transmission Date: 20150326
  Serious: No
  Sender: FDA-Public Use
  Company Number: None

PATIENT
  Age: 39 Year
  Sex: Female
  Weight: 61.24 kg

DRUGS (1)
  1. TOPIRAMATE. [Suspect]
     Active Substance: TOPIRAMATE
     Indication: MIGRAINE PROPHYLAXIS
     Dosage: 1 1/2 PILLS ( 150 MG) DAILY BY MOUTH
     Route: 048
     Dates: start: 20140605

REACTIONS (11)
  - Blister [None]
  - Gingival swelling [None]
  - Gingival bleeding [None]
  - Somnolence [None]
  - Onychoclasis [None]
  - Memory impairment [None]
  - Nausea [None]
  - Migraine [None]
  - Oral mucosal blistering [None]
  - Product substitution issue [None]
  - Headache [None]

NARRATIVE: CASE EVENT DATE: 20140607
